FAERS Safety Report 7389351-9 (Version None)
Quarter: 2011Q2

REPORT INFORMATION
  Report Type: 
  Country: None (occurrence: None)
  Receive Date: 20110401
  Receipt Date: 20110324
  Transmission Date: 20111010
  Serious: Yes (Hospitalization)
  Sender: FDA-Public Use
  Company Number: B0636471A

PATIENT
  Age: 62 Year
  Sex: Female

DRUGS (4)
  1. CRAVIT [Suspect]
     Route: 048
  2. XELODA [Concomitant]
     Dosage: 1800MG PER DAY
     Route: 048
     Dates: start: 20100221
  3. XELODA [Concomitant]
     Dosage: 1800MG PER DAY
     Route: 048
     Dates: start: 20100122, end: 20100128
  4. TYKERB [Suspect]
     Indication: BREAST CANCER
     Dosage: 1250MG PER DAY
     Route: 048
     Dates: start: 20100122

REACTIONS (4)
  - CONVULSION [None]
  - TREMOR [None]
  - DYSPHAGIA [None]
  - LOSS OF CONSCIOUSNESS [None]
